FAERS Safety Report 4581310-4 (Version None)
Quarter: 2005Q1

REPORT INFORMATION
  Report Type: 
  Country: None (occurrence: None)
  Receive Date: 20050127
  Receipt Date: 20040823
  Transmission Date: 20050727
  Serious: No
  Sender: FDA-Public Use
  Company Number: USA040876182

PATIENT
  Age: 43 Year
  Sex: Female

DRUGS (4)
  1. STRATTERA [Suspect]
     Indication: ATTENTION DEFICIT/HYPERACTIVITY DISORDER
     Dosage: 40 MG DAY
     Dates: start: 20040820
  2. PROZAC WEEKLY [Concomitant]
  3. PROZAC [Concomitant]
  4. INHALER [Concomitant]

REACTIONS (3)
  - DECREASED APPETITE [None]
  - INSOMNIA [None]
  - PSYCHOMOTOR HYPERACTIVITY [None]
